FAERS Safety Report 5717610-1 (Version None)
Quarter: 2008Q2

REPORT INFORMATION
  Report Type: 
  Country: None (occurrence: None)
  Receive Date: 20080425
  Receipt Date: 20080416
  Transmission Date: 20081010
  Serious: Yes (Hospitalization)
  Sender: FDA-Public Use
  Company Number: NL-JNJFOC-20080403127

PATIENT
  Sex: Female
  Weight: 70 kg

DRUGS (12)
  1. REMICADE [Suspect]
     Route: 042
  2. REMICADE [Suspect]
     Route: 042
  3. REMICADE [Suspect]
     Route: 042
  4. REMICADE [Suspect]
     Route: 042
  5. REMICADE [Suspect]
     Route: 042
  6. REMICADE [Suspect]
     Indication: CROHN'S DISEASE
     Route: 042
  7. LANVIS [Concomitant]
     Indication: CROHN'S DISEASE
  8. ENTOCORT EC [Concomitant]
     Indication: CROHN'S DISEASE
  9. FOLIUMZUUR [Concomitant]
     Indication: CROHN'S DISEASE
  10. CALICHEW [Concomitant]
     Indication: OSTEOPOROSIS PROPHYLAXIS
  11. ACTONEL [Concomitant]
     Indication: OSTEOPOROSIS PROPHYLAXIS
  12. VITAMIN B-12 [Concomitant]
     Dosage: 1000 ?(ILLEGIBLE UNIT)

REACTIONS (2)
  - CAECUM OPERATION [None]
  - INTESTINAL STOMA [None]
